FAERS Safety Report 11938536 (Version 1)
Quarter: 2016Q1

REPORT INFORMATION
  Report Type: Spontaneous
  Country: JP (occurrence: JP)
  Receive Date: 20160122
  Receipt Date: 20160122
  Transmission Date: 20160526
  Serious: Yes (Other)
  Sender: FDA-Public Use
  Company Number: JP-SUN PHARMACEUTICAL INDUSTRIES LTD-2015RR-109432

PATIENT

DRUGS (1)
  1. OCTREOTIDE. [Suspect]
     Active Substance: OCTREOTIDE
     Indication: CONGENITAL CYSTIC KIDNEY DISEASE
     Dosage: 2 X 20 MG, EVERY 4 WEEKS
     Route: 030

REACTIONS (2)
  - Diarrhoea [Recovered/Resolved]
  - Injection site granuloma [Recovered/Resolved]
